FAERS Safety Report 13813308 (Version 1)
Quarter: 2017Q3

REPORT INFORMATION
  Report Type: Report from Study
  Country: None (occurrence: US)
  Receive Date: 20170731
  Receipt Date: 20170731
  Transmission Date: 20171127
  Serious: Yes (Other)
  Sender: FDA-Public Use
  Company Number: US-ABBVIE-17K-163-1891722-00

PATIENT
  Sex: Male

DRUGS (2)
  1. HUMIRA [Suspect]
     Active Substance: ADALIMUMAB
     Indication: PSORIASIS
     Route: 058
     Dates: end: 20161229
  2. HUMIRA [Suspect]
     Active Substance: ADALIMUMAB
     Route: 058

REACTIONS (7)
  - Gastrooesophageal reflux disease [Unknown]
  - Respiratory tract infection [Not Recovered/Not Resolved]
  - Injection site pain [Not Recovered/Not Resolved]
  - Barrett^s oesophagus [Recovering/Resolving]
  - Gastric infection [Not Recovered/Not Resolved]
  - Supraventricular tachycardia [Not Recovered/Not Resolved]
  - Helicobacter infection [Not Recovered/Not Resolved]

NARRATIVE: CASE EVENT DATE: 2016
